FAERS Safety Report 5343742-6 (Version None)
Quarter: 2007Q2

REPORT INFORMATION
  Report Type: 
  Country: None (occurrence: None)
  Receive Date: 20070604
  Receipt Date: 20070524
  Transmission Date: 20071010
  Serious: Yes (Congenital Anomaly)
  Sender: FDA-Public Use
  Company Number: AU-AMGEN-US226812

PATIENT

DRUGS (3)
  1. ENBREL [Suspect]
     Indication: DRUG USE FOR UNKNOWN INDICATION
     Route: 064
  2. NAPROSYN [Concomitant]
     Route: 064
  3. SALAZOPYRIN [Concomitant]
     Route: 064

REACTIONS (1)
  - CONGENITAL HEARING DISORDER [None]
